FAERS Safety Report 5720097-6 (Version None)
Quarter: 2008Q2

REPORT INFORMATION
  Report Type: 
  Country: None (occurrence: None)
  Receive Date: 20080428
  Receipt Date: 20080423
  Transmission Date: 20081010
  Serious: Yes (Other)
  Sender: FDA-Public Use
  Company Number: JP-ASTRAZENECA-2008AP03036

PATIENT

DRUGS (2)
  1. NAROPIN [Suspect]
     Route: 065
  2. EPHEDRINE SUL CAP [Suspect]

REACTIONS (2)
  - HYPOTENSION [None]
  - MEDICATION ERROR [None]
